FAERS Safety Report 5097239-1 (Version None)
Quarter: 2006Q3

REPORT INFORMATION
  Report Type: 
  Country: None (occurrence: None)
  Receive Date: 20060906
  Receipt Date: 20060825
  Transmission Date: 20061208
  Serious: Yes (Other)
  Sender: FDA-Public Use
  Company Number: 2006GB01565

PATIENT

DRUGS (1)
  1. SEROQUEL [Suspect]
     Indication: SCHIZOPHRENIA
     Route: 048

REACTIONS (3)
  - BUNDLE BRANCH BLOCK LEFT [None]
  - DEPRESSION [None]
  - MYOCARDIAL ISCHAEMIA [None]
